FAERS Safety Report 4875120-8 (Version None)
Quarter: 2006Q1

REPORT INFORMATION
  Report Type: 
  Country: None (occurrence: None)
  Receive Date: 20060109
  Receipt Date: 20060105
  Transmission Date: 20060701
  Serious: Yes (Congenital Anomaly)
  Sender: FDA-Public Use
  Company Number: 200513635EU

PATIENT
  Sex: Female

DRUGS (4)
  1. LAMICTAL [Suspect]
  2. CLOBAZAM [Suspect]
  3. TOPAMAX [Suspect]
  4. CARBAMAZEPINE [Suspect]

REACTIONS (2)
  - DRUG EXPOSURE DURING PREGNANCY [None]
  - HIP DYSPLASIA [None]
